FAERS Safety Report 5853049-6 (Version None)
Quarter: 2008Q3

REPORT INFORMATION
  Report Type: 
  Country: None (occurrence: None)
  Receive Date: 20080821
  Receipt Date: 20080814
  Transmission Date: 20090109
  Serious: Yes (Hospitalization)
  Sender: FDA-Public Use
  Company Number: DE-ABBOTT-08P-062-0440619-00

PATIENT
  Sex: Female

DRUGS (3)
  1. HUMIRA [Suspect]
     Indication: CROHN'S DISEASE
     Route: 058
     Dates: start: 20080212, end: 20080701
  2. GLUCOCORTICOIDS [Concomitant]
     Indication: CROHN'S DISEASE
  3. CYCLOSPORINE [Concomitant]
     Indication: CROHN'S DISEASE

REACTIONS (4)
  - ABSCESS [None]
  - INTESTINAL STOMA [None]
  - PAIN [None]
  - SWELLING [None]
